FAERS Safety Report 25567483 (Version 1)
Quarter: 2025Q3

REPORT INFORMATION
  Report Type: Spontaneous
  Country: US (occurrence: US)
  Receive Date: 20250716
  Receipt Date: 20250716
  Transmission Date: 20251021
  Serious: Yes (Other)
  Sender: NOVARTIS
  Company Number: US-002147023-NVSC2025US111795

PATIENT
  Age: 13 Year
  Sex: Male

DRUGS (6)
  1. TRAMETINIB [Suspect]
     Active Substance: TRAMETINIB
     Indication: Astrocytoma
     Dosage: 1 MG, QD (RECEIVED FOR 34 MONTHS)
     Route: 065
  2. CARBOPLATIN [Suspect]
     Active Substance: CARBOPLATIN
     Indication: Astrocytoma
     Route: 065
  3. VINBLASTINE [Suspect]
     Active Substance: VINBLASTINE
     Indication: Astrocytoma
     Route: 065
  4. LENALIDOMIDE [Suspect]
     Active Substance: LENALIDOMIDE
     Indication: Astrocytoma
     Dosage: 25 MG, QD (FOR 12 MONTHS)
     Route: 065
  5. BINIMETINIB [Suspect]
     Active Substance: BINIMETINIB
     Indication: Astrocytoma
     Dosage: 45 MG, BID
     Route: 065
  6. HYDROXYCHLOROQUINE [Concomitant]
     Active Substance: HYDROXYCHLOROQUINE
     Indication: Astrocytoma
     Route: 065

REACTIONS (2)
  - Serous retinopathy [Recovered/Resolved]
  - Drug ineffective for unapproved indication [Unknown]
